FAERS Safety Report 9285986 (Version 2)
Quarter: 2013Q2

REPORT INFORMATION
  Report Type: Spontaneous
  Country: US (occurrence: US)
  Receive Date: 20130513
  Receipt Date: 20130513
  Transmission Date: 20140414
  Serious: No
  Sender: FDA-Public Use
  Company Number: US-ASTRAZENECA-2009SE28300

PATIENT
  Age: 69 Year
  Sex: Male
  Weight: 68 kg

DRUGS (6)
  1. CRESTOR [Suspect]
     Route: 048
     Dates: start: 200908
  2. METOPROLOL SUCCINATE (WATSON PHARMACEUTICALS) [Suspect]
     Route: 048
  3. TOPROL XL [Concomitant]
  4. PLAVIX [Concomitant]
  5. ASPIRIN [Concomitant]
  6. VERAPAMIL [Concomitant]

REACTIONS (2)
  - Adverse drug reaction [Unknown]
  - Headache [Not Recovered/Not Resolved]
